FAERS Safety Report 4405054-4 (Version None)
Quarter: 2004Q3

REPORT INFORMATION
  Report Type: 
  Country: None (occurrence: None)
  Receive Date: 20040716
  Receipt Date: 20040624
  Transmission Date: 20050211
  Serious: No
  Sender: FDA-Public Use
  Company Number: D01200402422

PATIENT
  Age: 63 Year
  Sex: Male

DRUGS (15)
  1. (FONDAPARINUX) SOLUTION [Suspect]
     Indication: ANGINA PECTORIS
     Dosage: 2.5 MG QD
     Route: 058
     Dates: start: 20040308
  2. (FONDAPARINUX) SOLUTION [Suspect]
     Indication: MYOCARDIAL INFARCTION
     Dosage: 2.5 MG QD
     Route: 058
     Dates: start: 20040308
  3. (FONDAPARINUX) SOLUTION [Suspect]
     Indication: ANGINA PECTORIS
     Dosage: 2.5 MG QD
     Route: 058
  4. (FONDAPARINUX) SOLUTION [Suspect]
     Indication: MYOCARDIAL INFARCTION
     Dosage: 2.5 MG QD
     Route: 058
  5. (FONDAPARINUX) SOLUTION [Suspect]
     Indication: ANGINA PECTORIS
     Dosage: 2.5 MG QD
     Route: 058
  6. (FONDAPARINUX) SOLUTION [Suspect]
     Indication: MYOCARDIAL INFARCTION
     Dosage: 2.5 MG QD
     Route: 058
  7. ASPIRIN [Concomitant]
  8. PLAVIX [Concomitant]
  9. INTEGRILIN [Concomitant]
  10. COREG (CARVEDIOLOL) [Concomitant]
  11. DIGOXIN [Concomitant]
  12. IMDUR (ISOSORBIDE) [Concomitant]
  13. LIPITOR [Concomitant]
  14. NITROGLYCERIN [Concomitant]
  15. LASIX [Concomitant]

REACTIONS (1)
  - CATHETER RELATED COMPLICATION [None]
